FAERS Safety Report 23237726 (Version 1)
Quarter: 2023Q4

REPORT INFORMATION
  Report Type: Spontaneous
  Country: JP (occurrence: JP)
  Receive Date: 20231128
  Receipt Date: 20231128
  Transmission Date: 20240109
  Serious: Yes (Death, Other)
  Sender: FDA-Public Use
  Company Number: JP-MSD-M2023-39089

PATIENT
  Age: 68 Year
  Sex: Female
  Weight: 53 kg

DRUGS (7)
  1. KEYTRUDA [Suspect]
     Active Substance: PEMBROLIZUMAB
     Indication: Triple negative breast cancer
     Dosage: 200 MILLIGRAM, Q3W
     Route: 041
     Dates: start: 20230407, end: 20230428
  2. KEYTRUDA [Suspect]
     Active Substance: PEMBROLIZUMAB
     Dosage: 200 MILLIGRAM, Q3W
     Route: 041
     Dates: start: 20230526, end: 20230804
  3. KEYTRUDA [Suspect]
     Active Substance: PEMBROLIZUMAB
     Dosage: 200 MILLIGRAM, Q3W
     Route: 041
     Dates: start: 20230915, end: 20231006
  4. CARBOPLATIN [Suspect]
     Active Substance: CARBOPLATIN
     Indication: Triple negative breast cancer
     Dosage: AUC1.5
     Route: 065
     Dates: start: 20230407, end: 20230616
  5. PACLITAXEL [Suspect]
     Active Substance: PACLITAXEL
     Indication: Triple negative breast cancer
     Dosage: UNK
     Route: 065
     Dates: start: 20230407, end: 20230616
  6. EPIRUBICIN HYDROCHLORIDE [Suspect]
     Active Substance: EPIRUBICIN HYDROCHLORIDE
     Indication: Triple negative breast cancer
     Dosage: UNK
     Route: 065
     Dates: start: 20230714, end: 20231006
  7. CYCLOPHOSPHAMIDE [Suspect]
     Active Substance: CYCLOPHOSPHAMIDE
     Indication: Triple negative breast cancer
     Dosage: UNK
     Route: 065
     Dates: start: 20230714, end: 20231006

REACTIONS (12)
  - Death [Fatal]
  - Malignant neoplasm progression [Unknown]
  - Depressed level of consciousness [Unknown]
  - Pancytopenia [Unknown]
  - Cardiac arrest [Unknown]
  - Intestinal ischaemia [Unknown]
  - Hyperkalaemia [Unknown]
  - Urinary incontinence [Unknown]
  - Infection [Unknown]
  - Hepatic function abnormal [Unknown]
  - Haemoglobin decreased [Unknown]
  - Off label use [Unknown]

NARRATIVE: CASE EVENT DATE: 20230101
